FAERS Safety Report 25925520 (Version 1)
Quarter: 2025Q4

REPORT INFORMATION
  Report Type: Spontaneous
  Country: US (occurrence: None)
  Receive Date: 20251014
  Receipt Date: 20251014
  Transmission Date: 20260118
  Serious: Yes (Other)
  Sender: FDA-CTU
  Company Number: None

PATIENT
  Age: 59 Year
  Sex: Male
  Weight: 101.25 kg

DRUGS (2)
  1. ARMODAFINIL [Suspect]
     Active Substance: ARMODAFINIL
     Indication: Obstructive sleep apnoea syndrome
     Dates: start: 20250919, end: 20251010
  2. KLONOPIN [Concomitant]
     Active Substance: CLONAZEPAM

REACTIONS (1)
  - Insomnia [None]

NARRATIVE: CASE EVENT DATE: 20251010
